FAERS Safety Report 19151110 (Version 1)
Quarter: 2021Q2

REPORT INFORMATION
  Report Type: Spontaneous
  Country: GB (occurrence: GB)
  Receive Date: 20210419
  Receipt Date: 20210419
  Transmission Date: 20210717
  Serious: Yes (Hospitalization, Other)
  Sender: FDA-Public Use
  Company Number: GB-TEVA-2021-GB-1896088

PATIENT
  Age: 48 Year
  Sex: Female
  Weight: 51.4 kg

DRUGS (15)
  1. ONDANSETRON [Suspect]
     Active Substance: ONDANSETRON
     Indication: NAUSEA
     Dosage: 16 MILLIGRAM DAILY; 8 MG
     Route: 048
     Dates: start: 20210220, end: 20210221
  2. DOXIL [Suspect]
     Active Substance: DOXORUBICIN HYDROCHLORIDE
     Indication: PRODUCT USED FOR UNKNOWN INDICATION
     Dosage: 4TH CYCLE, 50 MG, CAELYX 50 MG + 5% GLUCOSE 250 ML OVER 1 HOUR
     Route: 065
     Dates: start: 20210219
  3. GLUCOSE INTRAVENOUS INFUSION [Suspect]
     Active Substance: DEXTROSE
     Indication: MEDICATION DILUTION
     Dosage: 4TH CYCLE; CARBOPLATIN 450 MG + 5% GLUCOSE 500 ML OVER 1 HOUR, 500 ML
     Route: 065
     Dates: start: 20210219
  4. CARBOPLATIN. [Suspect]
     Active Substance: CARBOPLATIN
     Indication: OVARIAN CANCER
     Dosage: FIRST 3 CYCLES
     Route: 065
  5. GLUCOSE INTRAVENOUS INFUSION [Suspect]
     Active Substance: DEXTROSE
     Dosage: FIRST 3 CYCLES; CAELYX + 5% GLUCOSE
     Route: 065
  6. PARACETAMOL [Concomitant]
     Active Substance: ACETAMINOPHEN
     Indication: PAIN
     Dosage: 500 MG?1 G UPTO FOUR TIMES A DAY, AS REQUIRED; NOT KNOWN? LONG TERM
     Route: 048
  7. CARBOPLATIN. [Suspect]
     Active Substance: CARBOPLATIN
     Indication: PRODUCT USED FOR UNKNOWN INDICATION
     Dosage: 4TH CYCLE, 450 MG, CARBOPLATIN 450 MG + 5% GLUCOSE 500 ML GIVEN OVER 1 HOUR
     Route: 065
     Dates: start: 20210219
  8. DEXAMETHASONE. [Suspect]
     Active Substance: DEXAMETHASONE
     Indication: NAUSEA
     Dosage: 8 MILLIGRAM DAILY; 4 MG
     Route: 048
     Dates: start: 20210220, end: 20210221
  9. ONDANSETRON [Suspect]
     Active Substance: ONDANSETRON
     Indication: VOMITING
  10. METOCLOPRAMIDE. [Suspect]
     Active Substance: METOCLOPRAMIDE
     Indication: NAUSEA
  11. DOXIL [Suspect]
     Active Substance: DOXORUBICIN HYDROCHLORIDE
     Indication: OVARIAN CANCER
     Dosage: FIRST 3 CYCLES, CAELYX + 5% GLUCOSE
     Route: 065
  12. GLUCOSE INTRAVENOUS INFUSION [Suspect]
     Active Substance: DEXTROSE
     Dosage: 250 ML,4TH CYCLE; CAELYX 50 MG + 5% GLUCOSE 250 ML OVER 1 HOUR
     Route: 065
     Dates: start: 20210219
  13. GLUCOSE INTRAVENOUS INFUSION [Suspect]
     Active Substance: DEXTROSE
     Dosage: FIRST 3 CYCLES; CARBOPLATIN + 5% GLUCOSE
     Route: 065
  14. DEXAMETHASONE. [Suspect]
     Active Substance: DEXAMETHASONE
     Indication: VOMITING
  15. METOCLOPRAMIDE. [Suspect]
     Active Substance: METOCLOPRAMIDE
     Indication: VOMITING
     Dosage: 30 MILLIGRAM DAILY; 10 MGUPTO 3 TIMES A DAY, AS REQUIRED
     Route: 048
     Dates: start: 20201113

REACTIONS (4)
  - Neutropenic sepsis [Recovering/Resolving]
  - Myelosuppression [Unknown]
  - Pancytopenia [Recovering/Resolving]
  - Mouth ulceration [Unknown]

NARRATIVE: CASE EVENT DATE: 20210308
